FAERS Safety Report 7200696-5 (Version None)
Quarter: 2010Q4

REPORT INFORMATION
  Report Type: 
  Country: None (occurrence: None)
  Receive Date: 20101228
  Receipt Date: 20101220
  Transmission Date: 20110411
  Serious: Yes (Hospitalization, Disabling, Other)
  Sender: FDA-Public Use
  Company Number: JP-B.I. PHARMACEUTICALS,INC./RIDGEFIELD-2004-BP-00883NB

PATIENT
  Sex: Male

DRUGS (13)
  1. VIRAMUNE [Suspect]
     Indication: HIV INFECTION
     Dosage: 200 MG
     Route: 048
     Dates: start: 20020320, end: 20020618
  2. VIRAMUNE [Suspect]
     Dosage: 200 MG
     Route: 048
     Dates: start: 20020718, end: 20020731
  3. COMBIVIR [Suspect]
     Indication: HIV INFECTION
     Dosage: 2 DF
     Route: 048
     Dates: start: 20020320, end: 20020618
  4. VIRACEPT [Suspect]
     Indication: HIV INFECTION
     Dosage: 2500 MG
     Route: 048
     Dates: start: 20020718
  5. AMOBAN [Concomitant]
     Indication: INSOMNIA
     Dosage: 7.5 MG
     Route: 048
     Dates: start: 20020220, end: 20020529
  6. ALLEGRA [Concomitant]
     Indication: SEBORRHOEIC DERMATITIS
     Dosage: 120 MG
     Route: 048
     Dates: start: 20020307, end: 20020414
  7. BENAMBAX [Concomitant]
     Indication: ANTIFUNGAL PROPHYLAXIS
     Dosage: 300 MG
     Route: 055
     Dates: start: 20020401
  8. WYPAX [Concomitant]
     Indication: NEUROSIS
     Dosage: 1 MG
     Route: 048
     Dates: start: 20020415, end: 20020529
  9. LAMIVUDINE_ABACAVIR SULFATE [Concomitant]
  10. EMTRICITABINE/TENOFOVIR DISOPROXIL FUMARATE [Concomitant]
  11. ATAZANAVIR SULFATE [Concomitant]
  12. RITONAVIR [Concomitant]
  13. DARUNAVIR ETHANOLATE [Concomitant]

REACTIONS (8)
  - AIDS ENCEPHALOPATHY [None]
  - ANAEMIA [None]
  - DEMENTIA [None]
  - DIARRHOEA [None]
  - DIZZINESS [None]
  - GAIT DISTURBANCE [None]
  - LACTIC ACIDOSIS [None]
  - RHINITIS ALLERGIC [None]
